FAERS Safety Report 9963192 (Version 1)
Quarter: 2014Q1

REPORT INFORMATION
  Report Type: Report from Study
  Country: US (occurrence: US)
  Receive Date: 20140305
  Receipt Date: 20140305
  Transmission Date: 20141002
  Serious: No
  Sender: FDA-Public Use
  Company Number: US-ABBVIE-13P-163-1114224-00

PATIENT
  Sex: Female

DRUGS (7)
  1. HUMIRA [Suspect]
     Indication: COLITIS ULCERATIVE
     Route: 058
     Dates: start: 201204
  2. LIALDA [Concomitant]
     Indication: PRODUCT USED FOR UNKNOWN INDICATION
     Dosage: 3 - 4 TABS DAILY
  3. LIALDA [Concomitant]
     Dosage: DURING PREGNANCY
  4. PRENATAL VITAMINS [Concomitant]
     Indication: VITAMIN SUPPLEMENTATION
  5. ADVIL [Concomitant]
     Indication: MIGRAINE
  6. TYLENOL [Concomitant]
     Indication: MIGRAINE
  7. HYDROXYPROGESTERONE CAPROATE [Concomitant]
     Indication: PREMATURE LABOUR

REACTIONS (3)
  - Hypersensitivity [Unknown]
  - Pain [Unknown]
  - Influenza like illness [Unknown]
